FAERS Safety Report 9843126 (Version 1)
Quarter: 2013Q4

REPORT INFORMATION
  Report Type: Spontaneous
  Country: US (occurrence: None)
  Receive Date: 20131219
  Receipt Date: 20131219
  Transmission Date: 20140711
  Serious: Yes (Hospitalization)
  Sender: FDA-Public Use
  Company Number: 163-20785-13082680

PATIENT
  Age: 64 Year
  Sex: Male
  Weight: 62.6 kg

DRUGS (1)
  1. THALOMID [Suspect]
     Indication: MULTIPLE SCLEROSIS
     Route: 048
     Dates: start: 20130510, end: 201307

REACTIONS (2)
  - Pleural effusion [None]
  - Plasma cell myeloma [None]
